FAERS Safety Report 15687224 (Version 3)
Quarter: 2019Q1

REPORT INFORMATION
  Report Type: Report from Study
  Country: IT (occurrence: IT)
  Receive Date: 20181204
  Receipt Date: 20190312
  Transmission Date: 20190417
  Serious: Yes (Other)
  Sender: FDA-Public Use
  Company Number: PHHY2018IT164936

PATIENT
  Age: 76 Year
  Sex: Male

DRUGS (14)
  1. TRAMETINIB [Suspect]
     Active Substance: TRAMETINIB
     Dosage: 2 OT, UNK
     Route: 065
     Dates: start: 20180608, end: 20180613
  2. XATRAL [Concomitant]
     Active Substance: ALFUZOSIN
     Indication: BENIGN PROSTATIC HYPERPLASIA
     Dosage: 10 OT, UNK
     Route: 048
     Dates: start: 20170414
  3. TAFINLAR [Suspect]
     Active Substance: DABRAFENIB MESYLATE
     Dosage: 300 OT, UNK
     Route: 065
     Dates: start: 20180621, end: 20180627
  4. AVODART [Concomitant]
     Active Substance: DUTASTERIDE
     Indication: BENIGN PROSTATIC HYPERPLASIA
     Dosage: 0.5 OT, UNK
     Route: 048
     Dates: start: 20170414
  5. TORVAST [Concomitant]
     Active Substance: ATORVASTATIN
     Indication: HYPERCHOLESTEROLAEMIA
     Dosage: 10 OT, UNK
     Route: 048
     Dates: start: 20170414
  6. TAFINLAR [Suspect]
     Active Substance: DABRAFENIB MESYLATE
     Dosage: 300 OT, UNK
     Route: 065
     Dates: start: 20180616, end: 20180618
  7. TAFINLAR [Suspect]
     Active Substance: DABRAFENIB MESYLATE
     Dosage: 300 OT, UNK
     Route: 065
     Dates: start: 20180310, end: 20180606
  8. TRAMETINIB [Suspect]
     Active Substance: TRAMETINIB
     Dosage: 2 OT, UNK
     Route: 065
     Dates: start: 20180616, end: 20180618
  9. TRAMETINIB [Suspect]
     Active Substance: TRAMETINIB
     Dosage: 2 OT, UNK
     Route: 065
     Dates: start: 20180621, end: 20180627
  10. TRAMETINIB [Suspect]
     Active Substance: TRAMETINIB
     Dosage: 2 OT, UNK
     Route: 065
     Dates: start: 20180703
  11. CARDIOASPIRINA [Concomitant]
     Active Substance: ASPIRIN
     Indication: HYPERTENSION
     Dosage: 100 OT, UNK
     Route: 048
     Dates: start: 20170414
  12. TAFINLAR [Suspect]
     Active Substance: DABRAFENIB MESYLATE
     Dosage: 300 OT, UNK
     Route: 065
     Dates: start: 20180608, end: 20180613
  13. TRAMETINIB [Suspect]
     Active Substance: TRAMETINIB
     Dosage: 2 OT, UNK
     Route: 065
     Dates: start: 20180310, end: 20180606
  14. TAFINLAR [Suspect]
     Active Substance: DABRAFENIB MESYLATE
     Dosage: 300 OT, UNK
     Route: 065
     Dates: start: 20180703

REACTIONS (9)
  - Asthenia [Recovered/Resolved]
  - Tachycardia [Recovered/Resolved]
  - Pyrexia [Recovered/Resolved]
  - Bronchitis [Recovered/Resolved]
  - Bronchitis [Recovered/Resolved]
  - Hepatotoxicity [Recovered/Resolved]
  - Hyperkeratosis [Not Recovered/Not Resolved]
  - Pyrexia [Recovered/Resolved]
  - Pyrexia [Recovered/Resolved]

NARRATIVE: CASE EVENT DATE: 20180323
